FAERS Safety Report 21125998 (Version 2)
Quarter: 2022Q3

REPORT INFORMATION
  Report Type: Report from Study
  Country: US (occurrence: US)
  Receive Date: 20220725
  Receipt Date: 20220830
  Transmission Date: 20221026
  Serious: Yes (Hospitalization, Other)
  Sender: FDA-Public Use
  Company Number: US-ABBVIE-22K-163-4476630-00

PATIENT
  Sex: Male

DRUGS (4)
  1. HUMIRA [Suspect]
     Active Substance: ADALIMUMAB
     Indication: Psoriatic arthropathy
     Dosage: CITRATE FREE
     Route: 058
  2. HUMIRA [Suspect]
     Active Substance: ADALIMUMAB
     Dosage: CITRATE FREE
     Route: 058
  3. MODERNA COVID-19 VACCINE [Concomitant]
     Active Substance: ELASOMERAN
     Indication: COVID-19 immunisation
     Dosage: 1ST DOSE
     Route: 030
     Dates: start: 20210504, end: 20210504
  4. MODERNA COVID-19 VACCINE [Concomitant]
     Active Substance: ELASOMERAN
     Dosage: 2ND DOSE
     Route: 030
     Dates: start: 20211012, end: 20211012

REACTIONS (28)
  - Pneumothorax [Unknown]
  - Pulmonary thrombosis [Not Recovered/Not Resolved]
  - Chronic obstructive pulmonary disease [Recovering/Resolving]
  - Pulmonary embolism [Recovered/Resolved]
  - Asthma [Recovering/Resolving]
  - Hallucination [Unknown]
  - Hypophagia [Not Recovered/Not Resolved]
  - Illness [Recovered/Resolved]
  - Gastrointestinal motility disorder [Unknown]
  - Mucosal disorder [Unknown]
  - Fatigue [Not Recovered/Not Resolved]
  - Immune system disorder [Not Recovered/Not Resolved]
  - Drug interaction [Recovered/Resolved]
  - Gait inability [Recovered/Resolved]
  - Lung disorder [Not Recovered/Not Resolved]
  - Mental disorder [Recovered/Resolved]
  - Abdominal distension [Unknown]
  - Sputum discoloured [Unknown]
  - Foot fracture [Recovering/Resolving]
  - Thrombosis [Recovering/Resolving]
  - Psoriasis [Recovered/Resolved]
  - Psoriasis [Recovered/Resolved]
  - Unevaluable event [Unknown]
  - Pain in extremity [Unknown]
  - Dyspnoea [Not Recovered/Not Resolved]
  - Abdominal pain upper [Not Recovered/Not Resolved]
  - Vomiting [Unknown]
  - Adverse drug reaction [Unknown]

NARRATIVE: CASE EVENT DATE: 20220101
